FAERS Safety Report 24021043 (Version 2)
Quarter: 2024Q3

REPORT INFORMATION
  Report Type: Spontaneous
  Country: US (occurrence: US)
  Receive Date: 20240627
  Receipt Date: 20240710
  Transmission Date: 20241016
  Serious: Yes (Other)
  Sender: TEVA
  Company Number: US-TEVA-VS-3212518

PATIENT
  Age: 63 Year
  Sex: Male

DRUGS (4)
  1. TESTOSTERONE CYPIONATE [Suspect]
     Active Substance: TESTOSTERONE CYPIONATE
     Indication: Muscle building therapy
     Route: 050
  2. TESTOSTERONE PROPIONATE [Suspect]
     Active Substance: TESTOSTERONE PROPIONATE
     Indication: Muscle building therapy
     Route: 050
  3. TESTOSTERONE [Suspect]
     Active Substance: TESTOSTERONE
     Indication: Muscle building therapy
     Route: 048
  4. METHIMAZOLE [Concomitant]
     Active Substance: METHIMAZOLE
     Indication: Endocrine ophthalmopathy
     Route: 065

REACTIONS (6)
  - Coronary artery disease [Unknown]
  - Drug abuse [Unknown]
  - Intentional overdose [Unknown]
  - Blood luteinising hormone abnormal [Recovered/Resolved]
  - Blood testosterone abnormal [Recovered/Resolved]
  - Blood follicle stimulating hormone abnormal [Recovered/Resolved]
